FAERS Safety Report 13735470 (Version 1)
Quarter: 2017Q3

REPORT INFORMATION
  Report Type: Spontaneous
  Country: US (occurrence: US)
  Receive Date: 20170709
  Receipt Date: 20170709
  Transmission Date: 20171127
  Serious: No
  Sender: FDA-Public Use
  Company Number: None

PATIENT
  Age: 26 Year
  Sex: Female
  Weight: 60.75 kg

DRUGS (2)
  1. TYLENOL WITH CODEINE [Suspect]
     Active Substance: ACETAMINOPHEN\CODEINE PHOSPHATE
     Indication: PAIN
     Route: 048
  2. NUTRITION SHAKES [Concomitant]

REACTIONS (4)
  - Nasopharyngitis [None]
  - Influenza like illness [None]
  - Migraine [None]
  - Cold sweat [None]

NARRATIVE: CASE EVENT DATE: 20170708
